FAERS Safety Report 5212811-3 (Version None)
Quarter: 2007Q1

REPORT INFORMATION
  Report Type: 
  Country: None (occurrence: None)
  Receive Date: 20070119
  Receipt Date: 20070110
  Transmission Date: 20070707
  Serious: Yes (Hospitalization)
  Sender: FDA-Public Use
  Company Number: PHBS2007BR00898

PATIENT
  Age: 58 Year
  Sex: Male
  Weight: 90 kg

DRUGS (3)
  1. PREXIGE [Suspect]
     Indication: HEADACHE
     Dosage: 400 MG/DAY
     Route: 048
     Dates: start: 20070109
  2. DIOVAN AMLO [Suspect]
     Indication: HYPERTENSION
     Dosage: 80 VALS - 5 AMLO MG/DAY
     Route: 048
  3. AMOXICILLIN [Concomitant]
     Dosage: 875 MG, BID

REACTIONS (6)
  - BLOOD URINE PRESENT [None]
  - CHROMATURIA [None]
  - HEADACHE [None]
  - PHARYNGITIS [None]
  - PHARYNGOLARYNGEAL PAIN [None]
  - PYREXIA [None]
